FAERS Safety Report 13650021 (Version 1)
Quarter: 2017Q2

REPORT INFORMATION
  Report Type: Spontaneous
  Country: US (occurrence: US)
  Receive Date: 20170614
  Receipt Date: 20170614
  Transmission Date: 20170830
  Serious: No
  Sender: FDA-Public Use
  Company Number: US-PFIZER INC-2017254484

PATIENT
  Age: 56 Year
  Sex: Female
  Weight: 52.16 kg

DRUGS (5)
  1. PREDNISONE. [Concomitant]
     Active Substance: PREDNISONE
     Indication: URTICARIA
     Dosage: TAKING A 6 DAY COURSE
     Dates: start: 20170607
  2. MONTELUKAST [Concomitant]
     Active Substance: MONTELUKAST SODIUM
     Indication: DERMATITIS ALLERGIC
     Dosage: 10 MG, 1X/DAY
  3. RANITIDINE. [Concomitant]
     Active Substance: RANITIDINE
     Indication: DERMATITIS ALLERGIC
     Dosage: 300 MG, 1X/DAY
  4. EUCRISA [Suspect]
     Active Substance: CRISABOROLE
     Indication: URTICARIA
     Dosage: 2% APPLY ON EFFECTED AREA TWICE DAILY
  5. ALL DAY ALLERGY [Concomitant]
     Active Substance: CETIRIZINE HYDROCHLORIDE
     Indication: DERMATITIS ALLERGIC
     Dosage: 10 MG, 1X/DAY

REACTIONS (2)
  - Skin burning sensation [Unknown]
  - Product use in unapproved indication [Unknown]
